FAERS Safety Report 19034476 (Version 3)
Quarter: 2021Q3

REPORT INFORMATION
  Report Type: Spontaneous
  Country: CA (occurrence: CA)
  Receive Date: 20210319
  Receipt Date: 20210911
  Transmission Date: 20211014
  Serious: Yes (Hospitalization)
  Sender: FDA-Public Use
  Company Number: CA-TEVA-2021-CA-1890907

PATIENT
  Age: 43 Year
  Sex: Male
  Weight: 99 kg

DRUGS (10)
  1. HYDROMORPHONE [Concomitant]
     Active Substance: HYDROMORPHONE
  2. BACLOFEN. [Concomitant]
     Active Substance: BACLOFEN
  3. NICOTINE. [Concomitant]
     Active Substance: NICOTINE
  4. PANTOLOC [Concomitant]
     Active Substance: PANTOPRAZOLE SODIUM
  5. PREGABALIN. [Concomitant]
     Active Substance: PREGABALIN
  6. LORAZEPAM. [Concomitant]
     Active Substance: LORAZEPAM
  7. ETOPOSIDE. [Suspect]
     Active Substance: ETOPOSIDE
     Indication: COLON CANCER STAGE IV
     Route: 065
  8. CARBOPLATIN. [Suspect]
     Active Substance: CARBOPLATIN
     Indication: COLON CANCER STAGE IV
     Route: 065
  9. DEXAMETHASONE. [Concomitant]
     Active Substance: DEXAMETHASONE
     Route: 065
  10. TYLENOL [Concomitant]
     Active Substance: ACETAMINOPHEN

REACTIONS (3)
  - Product use in unapproved indication [Recovering/Resolving]
  - Pneumonia [Recovering/Resolving]
  - Febrile neutropenia [Recovering/Resolving]
